FAERS Safety Report 4821476-1 (Version None)
Quarter: 2005Q4

REPORT INFORMATION
  Report Type: 
  Country: None (occurrence: None)
  Receive Date: 20051103
  Receipt Date: 20051014
  Transmission Date: 20060501
  Serious: Yes (Hospitalization, Other)
  Sender: FDA-Public Use
  Company Number: USA0508106693

PATIENT
  Age: 32 Year
  Sex: Female

DRUGS (3)
  1. HUMATROPE [Suspect]
     Dosage: 2 MG/1 DAY
     Dates: start: 20020101
  2. FUROSEMIDE [Concomitant]
  3. ZAROXOLYN [Concomitant]

REACTIONS (8)
  - DRUG DISPENSING ERROR [None]
  - DRUG LEVEL INCREASED [None]
  - DYSPNOEA [None]
  - FLUID RETENTION [None]
  - GASTRIC BYPASS [None]
  - INCORRECT DOSE ADMINISTERED [None]
  - PHARMACEUTICAL PRODUCT COMPLAINT [None]
  - SHOULDER PAIN [None]
